FAERS Safety Report 16287255 (Version 1)
Quarter: 2019Q2

REPORT INFORMATION
  Report Type: Spontaneous
  Country: US (occurrence: US)
  Receive Date: 20190508
  Receipt Date: 20190508
  Transmission Date: 20190711
  Serious: Yes (Other)
  Sender: FDA-Public Use
  Company Number: US-PFIZER INC-2019191541

PATIENT
  Age: 42 Year
  Sex: Female
  Weight: 136.8 kg

DRUGS (2)
  1. ZOLOFT [Suspect]
     Active Substance: SERTRALINE HYDROCHLORIDE
     Indication: POST-TRAUMATIC STRESS DISORDER
  2. ZOLOFT [Suspect]
     Active Substance: SERTRALINE HYDROCHLORIDE
     Indication: DEPRESSION
     Dosage: 200 MG, 1X/DAY
     Route: 048
     Dates: start: 1996

REACTIONS (8)
  - Concussion [Not Recovered/Not Resolved]
  - Myocardial infarction [Unknown]
  - Weight increased [Unknown]
  - Chest pain [Not Recovered/Not Resolved]
  - Stress [Unknown]
  - Road traffic accident [Unknown]
  - Angiopathy [Unknown]
  - Gait disturbance [Unknown]

NARRATIVE: CASE EVENT DATE: 1997
